FAERS Safety Report 6468992-7 (Version None)
Quarter: 2009Q4

REPORT INFORMATION
  Report Type: 
  Country: None (occurrence: None)
  Receive Date: 20091203
  Receipt Date: 20091123
  Transmission Date: 20100525
  Serious: Yes (Other)
  Sender: FDA-Public Use
  Company Number: PHHY2009BR04297

PATIENT
  Sex: Male
  Weight: 102 kg

DRUGS (9)
  1. DIOVAN HCT [Suspect]
     Indication: HYPERTENSION
     Dosage: 80/12.5 MG
     Route: 048
     Dates: start: 20040401
  2. DIOVAN HCT [Suspect]
     Dosage: 160/12.5 MG ONCE DAILY
     Route: 048
  3. DIOVAN HCT [Suspect]
     Dosage: 160/12.5 MG, 2 TAB DAILY
     Route: 048
  4. DIOVAN HCT [Suspect]
     Route: 048
  5. ATENOLOL [Concomitant]
     Indication: HYPERTENSION
     Dosage: 25 MG, QD
     Route: 048
  6. AAS [Concomitant]
     Dosage: 2 DF, QD
     Route: 048
  7. CIPROFIBRATE [Concomitant]
     Indication: BLOOD TRIGLYCERIDES
     Dosage: 1 DF, QD
     Route: 048
  8. DAFLON (DIOSMIN) [Concomitant]
     Indication: ANGIOPATHY
     Dosage: 2 DF, QD
     Route: 048
     Dates: start: 20070101
  9. VYTORIN [Concomitant]
     Indication: BLOOD CHOLESTEROL
     Dosage: 10/20, 1 DF AT NIGHT
     Route: 048

REACTIONS (5)
  - BLOOD PRESSURE DECREASED [None]
  - CARDIOMEGALY [None]
  - MALAISE [None]
  - SOMNOLENCE [None]
  - WEIGHT INCREASED [None]
